FAERS Safety Report 5123677-4 (Version None)
Quarter: 2006Q4

REPORT INFORMATION
  Report Type: 
  Country: None (occurrence: None)
  Receive Date: 20061010
  Receipt Date: 20060718
  Transmission Date: 20070319
  Serious: Yes (Hospitalization, Other)
  Sender: FDA-Public Use
  Company Number: PHBS2006BR10915

PATIENT
  Age: 48 Year
  Sex: Female

DRUGS (3)
  1. CYCLOBENZAPRINE HCL [Concomitant]
  2. DICLOFENAC DIETHYLAMINE [Concomitant]
  3. CATAFLAM [Suspect]
     Indication: BACK PAIN
     Dosage: 75 MG, ONCE/SINGLE
     Dates: start: 20060428, end: 20060428

REACTIONS (3)
  - HYPOAESTHESIA [None]
  - NERVE INJURY [None]
  - PAIN [None]
